FAERS Safety Report 8257174-4 (Version None)
Quarter: 2012Q1

REPORT INFORMATION
  Report Type: 
  Country: None (occurrence: None)
  Receive Date: 20120330
  Receipt Date: 20120330
  Transmission Date: 20120608
  Serious: Yes (Life-Threatening)
  Sender: FDA-Public Use
  Company Number: None

PATIENT
  Sex: Female
  Weight: 84.6 kg

DRUGS (13)
  1. LISINOPRIL [Concomitant]
  2. QUININE SULFATE [Concomitant]
  3. LEVOFLOXACIN [Suspect]
     Indication: PNEUMONIA
     Dosage: 750 MG Q 24 IV
     Route: 042
  4. SOTALOL HCL [Suspect]
     Indication: ARRHYTHMIA
     Dosage: 120MG BID PO PRIOR TO ADMISSION
     Route: 048
  5. BENEFIBER [Concomitant]
  6. PRADAXA [Concomitant]
  7. VITAMIN B-12 [Concomitant]
  8. VITAMIN D [Concomitant]
  9. DETROL [Suspect]
     Indication: URINARY INCONTINENCE
     Dosage: LA 2MG QHS PO PRIOR TO ADMISSION
     Route: 048
  10. HYDROCHLOROTHIAZIDE [Concomitant]
  11. MIRALAX [Concomitant]
  12. MICARDIS [Concomitant]
  13. JUICE PLUS VITAMIN [Concomitant]

REACTIONS (1)
  - TORSADE DE POINTES [None]
